FAERS Safety Report 8583271-X (Version None)
Quarter: 2012Q3

REPORT INFORMATION
  Report Type: 
  Country: None (occurrence: None)
  Receive Date: 20120809
  Receipt Date: 20120807
  Transmission Date: 20120928
  Serious: Yes (Death, Hospitalization, Other)
  Sender: FDA-Public Use
  Company Number: DE-ABBOTT-07P-062-0357840-00

PATIENT
  Age: 64 Year
  Sex: Female

DRUGS (7)
  1. D-PENICILLAMINE [Suspect]
     Indication: PRODUCT USED FOR UNKNOWN INDICATION
  2. ETANERCEPT [Suspect]
     Indication: PRODUCT USED FOR UNKNOWN INDICATION
     Dates: start: 20040801, end: 20041201
  3. METHOTREXATE [Concomitant]
     Indication: PRODUCT USED FOR UNKNOWN INDICATION
     Dates: start: 20040801, end: 20041201
  4. METHOTREXATE [Concomitant]
  5. HUMIRA [Suspect]
     Indication: PRODUCT USED FOR UNKNOWN INDICATION
     Dates: start: 20050201, end: 20050501
  6. METHOTREXATE [Concomitant]
  7. D-PENICILLAMINE [Suspect]

REACTIONS (10)
  - METASTASES TO LIVER [None]
  - GENERAL PHYSICAL HEALTH DETERIORATION [None]
  - BREAST CANCER [None]
  - ASCITES [None]
  - OVARIAN CANCER METASTATIC [None]
  - IMPAIRED HEALING [None]
  - STAPHYLOCOCCAL INFECTION [None]
  - BREAST CANCER METASTATIC [None]
  - MULTI-ORGAN FAILURE [None]
  - MALIGNANT PERITONEAL NEOPLASM [None]
